FAERS Safety Report 16613840 (Version 1)
Quarter: 2019Q3

REPORT INFORMATION
  Report Type: Spontaneous
  Country: US (occurrence: US)
  Receive Date: 20190608
  Receipt Date: 20190608
  Transmission Date: 20191004
  Serious: No
  Sender: FDA-Public Use
  Company Number: None

PATIENT
  Age: 36 Year
  Sex: Female

DRUGS (1)
  1. HUMIRA [Suspect]
     Active Substance: ADALIMUMAB
     Indication: RHEUMATOID ARTHRITIS
     Route: 058
     Dates: start: 20181130, end: 20190503

REACTIONS (4)
  - Arthralgia [None]
  - Product dose omission [None]
  - Condition aggravated [None]
  - Product prescribing issue [None]

NARRATIVE: CASE EVENT DATE: 20190503
